FAERS Safety Report 22166044 (Version 1)
Quarter: 2023Q1

REPORT INFORMATION
  Report Type: Spontaneous
  Country: US (occurrence: None)
  Receive Date: 20230331
  Receipt Date: 20230331
  Transmission Date: 20230418
  Serious: No
  Sender: FDA-Public Use
  Company Number: None

PATIENT
  Age: 69 Year
  Sex: Female
  Weight: 90.9 kg

DRUGS (18)
  1. DILTIAZEM HYDROCHLORIDE [Suspect]
     Active Substance: DILTIAZEM HYDROCHLORIDE
     Indication: Hypertension
     Dosage: OTHER QUANTITY : 90 CAPSULE(S);?FREQUENCY : DAILY;?
     Route: 048
     Dates: start: 20230204, end: 20230328
  2. COENZYME Q10 [Concomitant]
     Active Substance: DIETARY SUPPLEMENT\UBIDECARENONE
  3. astaxathin [Concomitant]
  4. CHONDROITIN SULFATE A\GLUCOSAMINE [Concomitant]
     Active Substance: CHONDROITIN SULFATE A\GLUCOSAMINE
  5. VITAMIN K [Concomitant]
     Active Substance: PHYTONADIONE
  6. VITAMIN B12 [Concomitant]
     Active Substance: CYANOCOBALAMIN
  7. Green lipid mussel [Concomitant]
  8. DIETARY SUPPLEMENT\RESVERATROL [Concomitant]
     Active Substance: DIETARY SUPPLEMENT\RESVERATROL
  9. Alive Multi women^s 50+ [Concomitant]
  10. pumpkin seed oil [Concomitant]
  11. DIETARY SUPPLEMENT\HERBALS\MILK THISTLE [Concomitant]
     Active Substance: DIETARY SUPPLEMENT\HERBALS\MILK THISTLE
  12. UNSPECIFIED INGREDIENT [Concomitant]
     Active Substance: UNSPECIFIED INGREDIENT
  13. CHROMIUM POLYNICOTINATE [Concomitant]
  14. MAGNESIUM TAURATE [Concomitant]
  15. ALPHA LIPOIC ACID [Concomitant]
     Active Substance: .ALPHA.-LIPOIC ACID
  16. METAMUCIL [Concomitant]
     Active Substance: PLANTAGO SEED
  17. TAGAMET [Concomitant]
     Active Substance: CIMETIDINE
  18. GINGER [Concomitant]
     Active Substance: GINGER

REACTIONS (6)
  - Chest pain [None]
  - Fatigue [None]
  - Epistaxis [None]
  - Hypertension [None]
  - Irritable bowel syndrome [None]
  - Diverticulitis [None]

NARRATIVE: CASE EVENT DATE: 20230323
